FAERS Safety Report 4427865-1 (Version None)
Quarter: 2004Q3

REPORT INFORMATION
  Report Type: 
  Country: None (occurrence: None)
  Receive Date: 20040812
  Receipt Date: 20040728
  Transmission Date: 20050211
  Serious: Yes (Hospitalization)
  Sender: FDA-Public Use
  Company Number: 199677

PATIENT
  Age: 48 Year
  Sex: Female
  Weight: 108.8633 kg

DRUGS (5)
  1. AVONEX [Suspect]
     Indication: MULTIPLE SCLEROSIS
     Dosage: 30 MCG QW IM
     Route: 030
     Dates: start: 19990101, end: 20030801
  2. AVONEX [Suspect]
     Indication: MULTIPLE SCLEROSIS
     Dosage: 30 MCG QW IM
     Route: 030
     Dates: start: 20030801
  3. NEURONTIN [Concomitant]
  4. XANAX [Concomitant]
  5. EFFEXOR [Concomitant]

REACTIONS (12)
  - ABDOMINAL PAIN [None]
  - BACK PAIN [None]
  - FALL [None]
  - FLUID IMBALANCE [None]
  - LIPOMA [None]
  - MENORRHAGIA [None]
  - MULTIPLE SCLEROSIS [None]
  - NEOPLASM [None]
  - PHYSICAL EXAMINATION ABNORMAL [None]
  - RIB FRACTURE [None]
  - SMEAR CERVIX ABNORMAL [None]
  - STRESS SYMPTOMS [None]
